FAERS Safety Report 17071196 (Version 1)
Quarter: 2019Q4

REPORT INFORMATION
  Report Type: Spontaneous
  Country: FR (occurrence: FR)
  Receive Date: 20191125
  Receipt Date: 20191125
  Transmission Date: 20200122
  Serious: Yes (Other)
  Sender: FDA-Public Use
  Company Number: FR-PFIZER INC-2019504565

PATIENT
  Age: 67 Year
  Sex: Female

DRUGS (3)
  1. LOXAPINE HCL [Suspect]
     Active Substance: LOXAPINE HYDROCHLORIDE
     Dosage: UNK
     Dates: end: 201804
  2. SERTRALINE HCL [Suspect]
     Active Substance: SERTRALINE HYDROCHLORIDE
     Indication: THYMUS DISORDER
     Dosage: 4 DF, 1X/DAY
     Route: 048
     Dates: start: 201804
  3. TERALITHE [Suspect]
     Active Substance: LITHIUM CARBONATE
     Indication: AFFECTIVE DISORDER
     Dosage: UNK
     Route: 048
     Dates: start: 201707

REACTIONS (3)
  - Product use in unapproved indication [Unknown]
  - Off label use [Unknown]
  - Parkinsonism [Recovering/Resolving]

NARRATIVE: CASE EVENT DATE: 201804
